FAERS Safety Report 25578736 (Version 1)
Quarter: 2025Q3

REPORT INFORMATION
  Report Type: Spontaneous
  Country: AU (occurrence: AU)
  Receive Date: 20250718
  Receipt Date: 20250718
  Transmission Date: 20251021
  Serious: Yes (Other)
  Sender: ALCON
  Company Number: AU-ALCON LABORATORIES-ALC2025AU003571

PATIENT

DRUGS (1)
  1. BSS [Suspect]
     Active Substance: CALCIUM CHLORIDE\MAGNESIUM CHLORIDE\POTASSIUM CHLORIDE\SODIUM ACETATE\SODIUM CHLORIDE\SODIUM CITRATE
     Indication: Product used for unknown indication
     Route: 041

REACTIONS (2)
  - Retinal tear [Unknown]
  - Retinal detachment [Unknown]

NARRATIVE: CASE EVENT DATE: 20250711
